FAERS Safety Report 18291585 (Version 38)
Quarter: 2025Q1

REPORT INFORMATION
  Report Type: Spontaneous
  Country: AT (occurrence: AT)
  Receive Date: 20200921
  Receipt Date: 20250321
  Transmission Date: 20250409
  Serious: Yes (Hospitalization, Other)
  Sender: NOVARTIS
  Company Number: NVSC2020AT251665

PATIENT
  Age: 66 Year
  Sex: Female
  Weight: 80.4 kg

DRUGS (326)
  1. LAPATINIB [Suspect]
     Active Substance: LAPATINIB
     Indication: Breast cancer
     Dosage: 1250 MG, QD (MOST RECENT DOSE PRIOR TO THE EVENT PORT A CATH INFECTION: 08/JAN/2020)
     Route: 048
     Dates: start: 20191002, end: 20200107
  2. LAPATINIB [Suspect]
     Active Substance: LAPATINIB
     Dosage: 1000 MG, QD (MOST RECENT DOSE PRIOR TO THE EVENT LYMPH NODE METASTATIS AXILLA AND PORT A CATH INFECT
     Route: 048
     Dates: start: 20200108, end: 20200421
  3. VINORELBINE [Suspect]
     Active Substance: VINORELBINE TARTRATE
     Indication: HER2 positive breast cancer
     Dosage: 45 MG, Q3W
     Route: 042
     Dates: start: 20200422, end: 20200722
  4. VINORELBINE [Suspect]
     Active Substance: VINORELBINE TARTRATE
     Indication: Breast cancer metastatic
  5. FULVESTRANT [Suspect]
     Active Substance: FULVESTRANT
     Indication: Breast cancer metastatic
     Dosage: 500 MG QW, (MOST RECENT DOSE PRIOR TO THE EVENT LYMPH NODE METASTATIS AXILLA AND PORT A CATH INFECTI
     Route: 030
     Dates: start: 20171002, end: 20171115
  6. FULVESTRANT [Suspect]
     Active Substance: FULVESTRANT
     Dosage: 500 MG, QW (MOST RECENT DOSE PRIOR TO THE EVENT LYMPH NODE METASTATIS AXILLA AND PORT A CATH INFECTI
     Route: 030
     Dates: start: 20171116, end: 20191001
  7. DOCETAXEL [Suspect]
     Active Substance: DOCETAXEL
     Indication: Breast cancer metastatic
     Dosage: 570 MG, Q3W (MOST RECENT DOSE PRIOR TO THE EVENTS: 09 JUN 2017  )
     Route: 042
     Dates: start: 20170224, end: 20170317
  8. DOCETAXEL [Suspect]
     Active Substance: DOCETAXEL
     Dosage: 180 MG, Q3W
     Route: 042
     Dates: start: 20170609, end: 20170630
  9. DOCETAXEL [Suspect]
     Active Substance: DOCETAXEL
     Dosage: 549 MG, QW
     Route: 042
     Dates: start: 20170519, end: 20170519
  10. DOCETAXEL [Suspect]
     Active Substance: DOCETAXEL
     Route: 042
     Dates: start: 20210317, end: 20210428
  11. DOCETAXEL [Suspect]
     Active Substance: DOCETAXEL
     Dosage: 525 MG, QW (MOST RECENT DOSE PRIOR TO THE EVENTS: 09/JUN/2017 )
     Route: 065
     Dates: start: 20170410, end: 20170427
  12. DOCETAXEL [Suspect]
     Active Substance: DOCETAXEL
     Dosage: 190 MG, Q3W (MOST RECENT DOSE PRIOR TO THE EVENTS: 09 JUN 2017  )
     Route: 042
     Dates: start: 20170224, end: 20170317
  13. CAPECITABINE [Suspect]
     Active Substance: CAPECITABINE
     Indication: Breast cancer metastatic
     Dosage: 3500 MG, QD (MOST RECENT DOSE PRIOR TO THE EVENT LYMPH NODE METASTATIS AXILLA AND PORT A CATH INFECT
     Route: 048
     Dates: start: 20191002, end: 20200107
  14. CAPECITABINE [Suspect]
     Active Substance: CAPECITABINE
     Indication: Breast cancer metastatic
     Route: 048
     Dates: start: 20201230, end: 20210203
  15. CAPECITABINE [Suspect]
     Active Substance: CAPECITABINE
     Route: 048
     Dates: start: 20210210, end: 20210224
  16. CAPECITABINE [Suspect]
     Active Substance: CAPECITABINE
     Dosage: 3000 MG, QD
     Route: 048
     Dates: start: 20200108, end: 20200421
  17. CAPECITABINE [Suspect]
     Active Substance: CAPECITABINE
     Route: 065
  18. TYKERB [Suspect]
     Active Substance: LAPATINIB DITOSYLATE
     Indication: Breast cancer metastatic
     Dosage: 1250 MILLIGRAM, QD (MOST RECENT DOSE PRIOR TO THE EVENTLYMPH NODE METASTATIS AXILLA AND PORT A CATH:
     Route: 048
     Dates: start: 20191002, end: 20200107
  19. TYKERB [Suspect]
     Active Substance: LAPATINIB DITOSYLATE
     Indication: Breast cancer metastatic
     Dosage: 1000 MILLIGRAM, QD
     Route: 048
     Dates: start: 20200108, end: 20200421
  20. DOXORUBICIN [Suspect]
     Active Substance: DOXORUBICIN
     Indication: Breast cancer metastatic
     Dosage: 104.4 MG QD
     Route: 042
     Dates: start: 20210608, end: 20210608
  21. DOXORUBICIN HYDROCHLORIDE [Suspect]
     Active Substance: DOXORUBICIN HYDROCHLORIDE
     Indication: Breast cancer metastatic
     Dosage: 104.4 MG, QD (INTRAVENOUS USE NOT OTHERWISE SPECIFIED)
     Route: 042
     Dates: end: 20210608
  22. BLEOMYCIN SULFATE [Suspect]
     Active Substance: BLEOMYCIN SULFATE
     Indication: Breast cancer metastatic
     Dosage: 26.85 MG, QD, (DRUG WAS DISCONTINUED AS PLANNED NUMBER OF CYCLES)
     Route: 042
     Dates: start: 20200519, end: 20200519
  23. BLEOMYCIN SULFATE [Suspect]
     Active Substance: BLEOMYCIN SULFATE
     Indication: Breast cancer metastatic
     Dosage: 26.85 MG, QD (DRUG WAS DISCONTINUED AS PLANNED NUMBER OF CYCLES COMPLETED)
     Route: 042
  24. BLEOMYCIN SULFATE [Suspect]
     Active Substance: BLEOMYCIN SULFATE
     Dosage: 26.85 MILLIGRAM, QD
     Route: 042
     Dates: start: 20210105, end: 20210105
  25. ACETAMINOPHEN [Suspect]
     Active Substance: ACETAMINOPHEN
     Indication: Pseudomonal sepsis
     Route: 065
     Dates: start: 20200506, end: 20210622
  26. ADO-TRASTUZUMAB EMTANSINE [Suspect]
     Active Substance: ADO-TRASTUZUMAB EMTANSINE
     Indication: Breast cancer metastatic
     Dosage: MOST RECENT DOSE RECEIVED ON 810MG START DATE: 06/03/2019; END DATE: 09/09/2019,
     Route: 042
     Dates: start: 20190306, end: 20190909
  27. ADO-TRASTUZUMAB EMTANSINE [Suspect]
     Active Substance: ADO-TRASTUZUMAB EMTANSINE
     Indication: Breast cancer metastatic
  28. TRASTUZUMAB [Suspect]
     Active Substance: TRASTUZUMAB
     Indication: Breast cancer metastatic
     Dosage: 624 MILLIGRAM, QD/ MOST RECENT DOSE PRIOR TO THE EVENTS: 10/AUG/2017
     Route: 042
     Dates: start: 20170224, end: 20170224
  29. TRASTUZUMAB [Suspect]
     Active Substance: TRASTUZUMAB
     Indication: Breast cancer metastatic
     Route: 042
     Dates: start: 20170720, end: 20170720
  30. TRASTUZUMAB [Suspect]
     Active Substance: TRASTUZUMAB
     Indication: HER2 positive breast cancer
     Dosage: 390 MG, QD
     Route: 042
     Dates: start: 20170410, end: 20170427
  31. TRASTUZUMAB [Suspect]
     Active Substance: TRASTUZUMAB
     Dosage: 560 MG, Q3W
     Route: 042
     Dates: start: 20201230, end: 20210210
  32. TRASTUZUMAB [Suspect]
     Active Substance: TRASTUZUMAB
     Dosage: 432 MG, QD
     Route: 042
     Dates: start: 20170519, end: 20170519
  33. TRASTUZUMAB [Suspect]
     Active Substance: TRASTUZUMAB
     Dosage: 462 MG, QD
     Route: 042
     Dates: start: 20170810, end: 20190213
  34. TRASTUZUMAB [Suspect]
     Active Substance: TRASTUZUMAB
     Dosage: 414 MG, QD
     Route: 042
     Dates: start: 20170609, end: 20170630
  35. TRASTUZUMAB [Suspect]
     Active Substance: TRASTUZUMAB
     Dosage: 540 MG, Q3W
     Route: 042
     Dates: start: 20200422, end: 20200615
  36. TRASTUZUMAB [Suspect]
     Active Substance: TRASTUZUMAB
     Dosage: 468 MG, QD
     Route: 042
     Dates: start: 20170720, end: 20170720
  37. TRASTUZUMAB [Suspect]
     Active Substance: TRASTUZUMAB
     Dosage: 408 MG, Q3W
     Route: 042
     Dates: start: 20210317, end: 20210428
  38. TRASTUZUMAB [Suspect]
     Active Substance: TRASTUZUMAB
     Route: 065
     Dates: start: 20200814, end: 20201015
  39. TRASTUZUMAB [Suspect]
     Active Substance: TRASTUZUMAB
     Dosage: 468 MG/KG, QD
     Route: 065
     Dates: start: 20200317, end: 20200317
  40. TRASTUZUMAB [Suspect]
     Active Substance: TRASTUZUMAB
     Dosage: 414 MG, QD
     Route: 042
     Dates: start: 20170609, end: 20170630
  41. TRASTUZUMAB [Suspect]
     Active Substance: TRASTUZUMAB
     Dosage: 1242 MG, TIW
     Route: 042
     Dates: start: 20170609, end: 20170630
  42. TRASTUZUMAB [Suspect]
     Active Substance: TRASTUZUMAB
     Dosage: 1386 MG, TIW
     Route: 042
     Dates: start: 20170810, end: 20190213
  43. TRASTUZUMAB [Suspect]
     Active Substance: TRASTUZUMAB
     Dosage: 1526 MG, TIW
     Route: 042
     Dates: start: 20200422, end: 20200615
  44. TRASTUZUMAB [Suspect]
     Active Substance: TRASTUZUMAB
     Dosage: 1680 MG, TIW
     Route: 042
     Dates: start: 20201230, end: 20210210
  45. TRASTUZUMAB [Suspect]
     Active Substance: TRASTUZUMAB
     Dosage: 462 MG, Q3W
     Route: 042
  46. TRASTUZUMAB [Suspect]
     Active Substance: TRASTUZUMAB
     Dosage: 432 MG, QD
     Route: 042
  47. TRASTUZUMAB [Suspect]
     Active Substance: TRASTUZUMAB
     Dosage: 414 MG, Q3W
     Route: 042
  48. TRASTUZUMAB [Suspect]
     Active Substance: TRASTUZUMAB
     Dosage: 408 MG, Q3W
     Route: 042
  49. TRASTUZUMAB [Suspect]
     Active Substance: TRASTUZUMAB
     Route: 042
  50. TRASTUZUMAB [Suspect]
     Active Substance: TRASTUZUMAB
     Dosage: 1620 MG, TIW
     Route: 042
     Dates: start: 20200422, end: 20200615
  51. XELODA [Suspect]
     Active Substance: CAPECITABINE
     Indication: Breast cancer metastatic
     Dosage: 3500 MG, QD (MOST RECENT DOSE EVENT PORT A CATH INFECTION:  PRIOR TO THE 08/JAN/2020)
     Route: 048
     Dates: start: 20191002, end: 20200107
  52. XELODA [Suspect]
     Active Substance: CAPECITABINE
     Indication: Breast cancer metastatic
     Dosage: 3000 MILLIGRAM, QD
     Route: 048
     Dates: start: 20200108, end: 20200421
  53. XELODA [Suspect]
     Active Substance: CAPECITABINE
     Indication: Breast cancer metastatic
     Dosage: DAILY FOR 2 WEEKS THEN PAUSE FOR 1 WEEK
     Route: 048
     Dates: start: 20201230, end: 20210203
  54. XELODA [Suspect]
     Active Substance: CAPECITABINE
     Dosage: 3500 MILLIGRAM, QD
     Route: 048
     Dates: start: 20210210, end: 20210224
  55. PERTUZUMAB [Suspect]
     Active Substance: PERTUZUMAB
     Indication: Breast cancer metastatic
     Dosage: 840 MG, QD (MOST RECENT DOSE PRIOR TO THE EVENT LYMPH NODE METASTATIS AXILLA AND PORT A CATH INFECTI
     Route: 042
     Dates: start: 20170224, end: 20170224
  56. PERTUZUMAB [Suspect]
     Active Substance: PERTUZUMAB
     Indication: Breast cancer metastatic
     Dosage: 840 MG, QD
     Route: 042
     Dates: start: 20170417, end: 20210428
  57. PERTUZUMAB [Suspect]
     Active Substance: PERTUZUMAB
     Indication: HER2 positive breast cancer
     Dosage: 840 MG, QD
     Route: 042
     Dates: start: 20200422, end: 20200615
  58. PERTUZUMAB [Suspect]
     Active Substance: PERTUZUMAB
     Indication: HER2 positive breast cancer
     Dosage: 420 MG, QD
     Route: 042
     Dates: start: 20170317, end: 20190213
  59. PERTUZUMAB [Suspect]
     Active Substance: PERTUZUMAB
     Dosage: 840 MG, QD
     Route: 042
     Dates: start: 20210317, end: 20210428
  60. PERTUZUMAB [Suspect]
     Active Substance: PERTUZUMAB
     Dosage: 840 MG, QD
     Route: 065
     Dates: start: 20170214, end: 20210428
  61. PERTUZUMAB [Suspect]
     Active Substance: PERTUZUMAB
     Route: 065
     Dates: start: 20170317
  62. FASLODEX [Suspect]
     Active Substance: FULVESTRANT
     Indication: HER2 positive breast cancer
     Dosage: 500 MG, BIW
     Route: 058
     Dates: start: 20171002
  63. FASLODEX [Suspect]
     Active Substance: FULVESTRANT
     Indication: Breast cancer metastatic
     Dosage: 500 MG, QMO
     Route: 058
     Dates: start: 20171116, end: 20191001
  64. FASLODEX [Suspect]
     Active Substance: FULVESTRANT
     Indication: Breast cancer
     Dosage: 500 MG, BIW
     Route: 058
     Dates: start: 20171002
  65. FASLODEX [Suspect]
     Active Substance: FULVESTRANT
     Route: 058
     Dates: start: 20171002, end: 20171115
  66. HERCEPTIN [Suspect]
     Active Substance: TRASTUZUMAB
     Indication: HER2 positive breast cancer
     Dosage: 624 MILLIGRAM, QD
     Route: 042
     Dates: start: 20170224, end: 20170224
  67. HERCEPTIN [Suspect]
     Active Substance: TRASTUZUMAB
     Indication: Breast cancer metastatic
     Dosage: 468.000MG QD
     Route: 042
     Dates: start: 20170317, end: 20170317
  68. HERCEPTIN [Suspect]
     Active Substance: TRASTUZUMAB
     Indication: HER2 positive breast cancer
     Route: 042
     Dates: start: 20170410, end: 20170427
  69. HERCEPTIN [Suspect]
     Active Substance: TRASTUZUMAB
     Dosage: 432 MILLIGRAM, QD
     Route: 042
     Dates: start: 20170519, end: 20170519
  70. HERCEPTIN [Suspect]
     Active Substance: TRASTUZUMAB
     Dosage: 414 MILLIGRAM, Q3W
     Route: 042
     Dates: start: 20170609, end: 20170630
  71. HERCEPTIN [Suspect]
     Active Substance: TRASTUZUMAB
     Route: 065
     Dates: start: 20170720, end: 20170720
  72. HERCEPTIN [Suspect]
     Active Substance: TRASTUZUMAB
     Dosage: 462 MILLIGRAM, Q3W
     Route: 042
     Dates: start: 20170810, end: 20190213
  73. HERCEPTIN [Suspect]
     Active Substance: TRASTUZUMAB
     Dosage: 540 MILLIGRAM, Q3W
     Route: 042
     Dates: start: 20200422, end: 20200615
  74. HERCEPTIN [Suspect]
     Active Substance: TRASTUZUMAB
     Dosage: 560 MILLIGRAM, Q3W
     Route: 042
     Dates: start: 20201230, end: 20210210
  75. HERCEPTIN [Suspect]
     Active Substance: TRASTUZUMAB
     Dosage: 408 MILLIGRAM, Q3W
     Route: 042
     Dates: start: 20210317, end: 20210428
  76. HERCEPTIN [Suspect]
     Active Substance: TRASTUZUMAB
     Dosage: 468 MILLIGRAM, QD
     Route: 042
     Dates: start: 20170720, end: 20170720
  77. HERCEPTIN [Suspect]
     Active Substance: TRASTUZUMAB
     Dosage: 414.000MG TIW
     Route: 042
     Dates: start: 20170609, end: 20170630
  78. HERCEPTIN [Suspect]
     Active Substance: TRASTUZUMAB
     Dosage: 462.000MG TIW
     Route: 042
     Dates: start: 20170810, end: 20190213
  79. HERCEPTIN [Suspect]
     Active Substance: TRASTUZUMAB
     Route: 042
     Dates: start: 20170720, end: 20170720
  80. HERCEPTIN [Suspect]
     Active Substance: TRASTUZUMAB
     Route: 042
     Dates: start: 20170410, end: 20170427
  81. HERCEPTIN [Suspect]
     Active Substance: TRASTUZUMAB
     Dosage: 1242 MG, QW
     Route: 065
     Dates: start: 20170609, end: 20170630
  82. HERCEPTIN [Suspect]
     Active Substance: TRASTUZUMAB
     Dosage: 1386 MG, QW
     Route: 065
     Dates: start: 20170810, end: 20190213
  83. HERCEPTIN [Suspect]
     Active Substance: TRASTUZUMAB
     Dosage: 1620 MG, QW
     Route: 065
     Dates: start: 20200422, end: 20200615
  84. HERCEPTIN [Suspect]
     Active Substance: TRASTUZUMAB
     Dosage: 1680 MG, QW
     Route: 065
     Dates: start: 20201230, end: 20210210
  85. NAVELBINE [Suspect]
     Active Substance: VINORELBINE TARTRATE
     Indication: Breast cancer metastatic
     Dosage: 135 MG, QW, (45.000MG TIW)
     Route: 042
     Dates: start: 20200422, end: 20200722
  86. NAVELBINE [Suspect]
     Active Substance: VINORELBINE TARTRATE
     Indication: Breast cancer metastatic
     Dosage: START DATE: 22/04/2020; END DATE: 22/07/2020
     Route: 042
     Dates: start: 20200422, end: 20200722
  87. NAVELBINE [Suspect]
     Active Substance: VINORELBINE TARTRATE
     Indication: HER2 positive breast cancer
     Dosage: 45 MG, Q3W
     Route: 042
     Dates: start: 20200722
  88. NAVELBINE [Suspect]
     Active Substance: VINORELBINE TARTRATE
     Indication: Breast cancer metastatic
  89. NAVELBINE [Suspect]
     Active Substance: VINORELBINE TARTRATE
     Indication: Breast cancer metastatic
  90. TAXOTERE [Suspect]
     Active Substance: DOCETAXEL
     Indication: Breast cancer metastatic
     Dosage: 190 MG, ONCE EVERY 3 WK (190 MILLIGRAM, Q3WK MOSTRECENT DOSE PRIOR TO THE EVENTS: 09/JUN/2017)
     Route: 042
     Dates: start: 20170224, end: 20170317
  91. TAXOTERE [Suspect]
     Active Substance: DOCETAXEL
     Dosage: 570 MG, QW, (MOST RECENT DOSE PRIOR TO THE EVENTS: 09/JUN/2017)
     Route: 042
     Dates: start: 20170224, end: 20170317
  92. TAXOTERE [Suspect]
     Active Substance: DOCETAXEL
     Dosage: 402.75 MG, QW, (134.250MG TIW)
     Route: 042
     Dates: start: 20210317, end: 20210428
  93. TAXOTERE [Suspect]
     Active Substance: DOCETAXEL
     Dosage: 134.25 MILLIGRAM, Q3W
     Route: 042
     Dates: start: 20210317, end: 20210428
  94. TAXOTERE [Suspect]
     Active Substance: DOCETAXEL
     Route: 042
     Dates: start: 20170410, end: 20170427
  95. TAXOTERE [Suspect]
     Active Substance: DOCETAXEL
     Dosage: 183 MILLIGRAM, UNK
     Route: 042
     Dates: start: 20170519, end: 20170519
  96. TAXOTERE [Suspect]
     Active Substance: DOCETAXEL
     Dosage: 180 MG, Q3W
     Route: 042
     Dates: start: 20170609, end: 20170630
  97. TAXOTERE [Suspect]
     Active Substance: DOCETAXEL
     Dosage: 540 MG, QW, (180.000MG TIW)
     Route: 042
     Dates: start: 20170609, end: 20170630
  98. TAXOTERE [Suspect]
     Active Substance: DOCETAXEL
     Dosage: 134.25 MILLIGRAM, Q3WK
     Route: 042
     Dates: start: 20170317, end: 20170428
  99. TAXOTERE [Suspect]
     Active Substance: DOCETAXEL
     Route: 042
     Dates: start: 20170410, end: 20170427
  100. TAXOTERE [Suspect]
     Active Substance: DOCETAXEL
     Dosage: 370 MG, QD
     Route: 042
     Dates: start: 20170519, end: 20170519
  101. TAXOTERE [Suspect]
     Active Substance: DOCETAXEL
     Route: 065
  102. TAXOTERE [Suspect]
     Active Substance: DOCETAXEL
     Dosage: 190 MG, ONCE EVERY 3 WK (190 MILLIGRAM, Q3WK MOSTRECENT DOSE PRIOR TO THE EVENTS: 09/JUN/2017)
     Route: 042
     Dates: start: 20170224, end: 20170317
  103. TAXOTERE [Suspect]
     Active Substance: DOCETAXEL
     Route: 042
     Dates: start: 20170410, end: 20170427
  104. TAXOTERE [Suspect]
     Active Substance: DOCETAXEL
     Dosage: 370 MG, QD
     Route: 065
     Dates: start: 20170519, end: 20170519
  105. TAXOTERE [Suspect]
     Active Substance: DOCETAXEL
     Dosage: 180 MG, ONCE EVERY 3 WK
     Route: 042
     Dates: start: 20170609, end: 20170630
  106. TAXOTERE [Suspect]
     Active Substance: DOCETAXEL
     Route: 065
  107. TAXOTERE [Suspect]
     Active Substance: DOCETAXEL
     Route: 065
     Dates: start: 20170410, end: 20170427
  108. TAXOTERE [Suspect]
     Active Substance: DOCETAXEL
     Route: 042
     Dates: start: 20170410, end: 20170427
  109. TAXOTERE [Suspect]
     Active Substance: DOCETAXEL
     Route: 065
     Dates: start: 20170519, end: 20170519
  110. TAXOTERE [Suspect]
     Active Substance: DOCETAXEL
     Dosage: 402.75 MILLIGRAM 402.75 MG, MOST RECENT DOSE PRIOR TO THE EVENTS: 09/JUN/2017
     Route: 042
     Dates: start: 20210317, end: 20210428
  111. TAXOTERE [Suspect]
     Active Substance: DOCETAXEL
     Dosage: 40.75 MG, QW
     Route: 065
     Dates: start: 20210317, end: 20210428
  112. PERJETA [Suspect]
     Active Substance: PERTUZUMAB
     Indication: HER2 positive breast cancer
     Dosage: 840 MILLIGRAM, QD
     Route: 042
     Dates: start: 20170224, end: 20170224
  113. PERJETA [Suspect]
     Active Substance: PERTUZUMAB
     Indication: Breast cancer metastatic
     Dosage: 420 MG, QD (FROM 3 WEEKS TO 24DAYS)
     Route: 042
     Dates: start: 20170317, end: 20190213
  114. PERJETA [Suspect]
     Active Substance: PERTUZUMAB
     Indication: Breast cancer metastatic
     Dosage: 840 MILLIGRAM, QD
     Route: 042
     Dates: start: 20210317, end: 20210428
  115. PERJETA [Suspect]
     Active Substance: PERTUZUMAB
     Dosage: 840 MILLIGRAM, QD
     Route: 042
     Dates: start: 20200422, end: 20200615
  116. XGEVA [Suspect]
     Active Substance: DENOSUMAB
     Indication: Breast cancer metastatic
     Dosage: 120 MG, QMO
     Route: 065
     Dates: start: 20170202, end: 20210521
  117. KADCYLA [Suspect]
     Active Substance: ADO-TRASTUZUMAB EMTANSINE
     Indication: HER2 positive breast cancer
     Dosage: 810 MG, QW, (270 MILLIGRAM, Q3WK)
     Route: 042
     Dates: start: 20190306, end: 20190909
  118. KADCYLA [Suspect]
     Active Substance: ADO-TRASTUZUMAB EMTANSINE
     Indication: Breast cancer metastatic
     Dosage: 270 MILLIGRAM, Q3W
     Route: 042
     Dates: start: 20190306, end: 20190909
  119. KADCYLA [Suspect]
     Active Substance: ADO-TRASTUZUMAB EMTANSINE
     Route: 065
  120. DOXIL [Suspect]
     Active Substance: DOXORUBICIN HYDROCHLORIDE
     Indication: HER2 positive breast cancer
     Route: 042
     Dates: start: 20210608, end: 20210608
  121. DOXIL [Suspect]
     Active Substance: DOXORUBICIN HYDROCHLORIDE
     Indication: Breast cancer metastatic
     Dosage: 104.4 MILLIGRAM, QD
     Route: 042
     Dates: start: 20210608, end: 20210608
  122. DENOSUMAB [Suspect]
     Active Substance: DENOSUMAB
     Indication: Breast cancer metastatic
     Dosage: 120 MG, Q4W (INTRAVENOUS BOLUS)
     Route: 050
     Dates: start: 20201230, end: 20210210
  123. DENOSUMAB [Suspect]
     Active Substance: DENOSUMAB
     Indication: Breast cancer metastatic
     Dosage: 120 MG, ONCE EVERY 4 WK
     Route: 042
     Dates: start: 20170202
  124. ENHERTU [Suspect]
     Active Substance: FAM-TRASTUZUMAB DERUXTECAN-NXKI
     Indication: Breast cancer metastatic
     Route: 042
     Dates: start: 20200814, end: 20201015
  125. TUCATINIB [Suspect]
     Active Substance: TUCATINIB
     Indication: Breast cancer metastatic
     Dosage: 300 MG, BID (0.5 DAY)
     Route: 048
     Dates: start: 20201230, end: 20210210
  126. TUCATINIB [Suspect]
     Active Substance: TUCATINIB
     Indication: Breast cancer metastatic
     Dosage: 300 MILLIGRAM, UNK
     Route: 048
     Dates: start: 20201230, end: 20210210
  127. TUCATINIB [Suspect]
     Active Substance: TUCATINIB
     Indication: Breast cancer metastatic
  128. TUCATINIB [Suspect]
     Active Substance: TUCATINIB
     Indication: Breast cancer metastatic
  129. PEGFILGRASTIM [Suspect]
     Active Substance: PEGFILGRASTIM
     Indication: Product used for unknown indication
     Dosage: UNK
     Route: 065
     Dates: start: 20210610, end: 20210610
  130. PEGFILGRASTIM [Suspect]
     Active Substance: PEGFILGRASTIM
     Indication: Product used for unknown indication
  131. VINORELBINE TARTRATE [Suspect]
     Active Substance: VINORELBINE TARTRATE
     Indication: Breast cancer metastatic
     Dosage: 45 MG, Q3W
     Route: 042
     Dates: start: 20200422, end: 20200722
  132. ACETAMINOPHEN [Concomitant]
     Active Substance: ACETAMINOPHEN
     Indication: Pseudomonal sepsis
     Route: 065
     Dates: start: 20200506
  133. ACETAMINOPHEN [Concomitant]
     Active Substance: ACETAMINOPHEN
     Route: 065
     Dates: start: 20200506, end: 20201215
  134. ACETAMINOPHEN [Concomitant]
     Active Substance: ACETAMINOPHEN
     Route: 065
     Dates: start: 20210622, end: 20210622
  135. ACETAMINOPHEN [Concomitant]
     Active Substance: ACETAMINOPHEN
     Route: 065
     Dates: start: 20200506, end: 20210622
  136. ACETAMINOPHEN [Concomitant]
     Active Substance: ACETAMINOPHEN
     Route: 065
     Dates: start: 20200610, end: 20200616
  137. CARBOXYMETHYLCELLULOSE SODIUM [Concomitant]
     Active Substance: CARBOXYMETHYLCELLULOSE SODIUM
     Indication: Product used for unknown indication
     Route: 065
     Dates: start: 20210105, end: 20210413
  138. CARBOXYMETHYLCELLULOSE SODIUM [Concomitant]
     Active Substance: CARBOXYMETHYLCELLULOSE SODIUM
     Route: 065
  139. CARBOXYMETHYLCELLULOSE SODIUM [Concomitant]
     Active Substance: CARBOXYMETHYLCELLULOSE SODIUM
     Route: 065
  140. CALCIUM CARBONATE\CHOLECALCIFEROL [Concomitant]
     Active Substance: CALCIUM CARBONATE\CHOLECALCIFEROL
     Indication: Paronychia
     Route: 065
     Dates: start: 20170203
  141. OLIVE OIL [Concomitant]
     Active Substance: OLIVE OIL
     Indication: Paronychia
     Route: 065
     Dates: start: 20191002, end: 20200512
  142. OLIVE OIL [Concomitant]
     Active Substance: OLIVE OIL
     Route: 065
     Dates: start: 20191002, end: 20200512
  143. Leukichtan [Concomitant]
     Indication: Product used for unknown indication
     Route: 065
     Dates: start: 20200430, end: 20200515
  144. Kalioral [Concomitant]
     Indication: Product used for unknown indication
     Route: 048
     Dates: start: 20200427, end: 20200428
  145. Kalioral [Concomitant]
     Route: 065
     Dates: start: 20200608, end: 20200609
  146. EMEND [Concomitant]
     Active Substance: APREPITANT
     Indication: Product used for unknown indication
     Route: 065
     Dates: start: 20200428, end: 20200430
  147. KCL [Concomitant]
     Active Substance: POTASSIUM CHLORIDE
     Indication: Product used for unknown indication
     Route: 048
     Dates: start: 20170429, end: 20190305
  148. KCL [Concomitant]
     Active Substance: POTASSIUM CHLORIDE
     Route: 065
     Dates: start: 20170429
  149. Oleovit [Concomitant]
     Indication: Product used for unknown indication
     Route: 065
     Dates: start: 20170329, end: 20180807
  150. Oleovit [Concomitant]
     Dosage: 30 DRP, QW (30 DROPS, ONCE EVERY 1 WK,1/12 MILLILITRE)
     Route: 048
     Dates: start: 20170329, end: 20210615
  151. Oleovit [Concomitant]
     Route: 065
     Dates: start: 20170329
  152. EDOXABAN TOSYLATE [Concomitant]
     Active Substance: EDOXABAN TOSYLATE
     Indication: Product used for unknown indication
     Route: 065
     Dates: start: 20191120, end: 20200608
  153. EDOXABAN TOSYLATE [Concomitant]
     Active Substance: EDOXABAN TOSYLATE
     Route: 065
     Dates: start: 20200613, end: 20210611
  154. FENTANYL [Concomitant]
     Active Substance: FENTANYL
     Indication: Product used for unknown indication
     Dosage: UNK, BID (0.5 DAY)
     Route: 062
     Dates: start: 20200515
  155. PANTOPRAZOLE SODIUM [Concomitant]
     Active Substance: PANTOPRAZOLE SODIUM
     Indication: Gastrointestinal disorder
     Route: 048
     Dates: start: 20170722, end: 20180327
  156. PANTOPRAZOLE SODIUM [Concomitant]
     Active Substance: PANTOPRAZOLE SODIUM
     Route: 048
     Dates: start: 20200506, end: 20200519
  157. PANTOPRAZOLE SODIUM [Concomitant]
     Active Substance: PANTOPRAZOLE SODIUM
     Route: 048
     Dates: start: 20210317, end: 20210607
  158. PANTOPRAZOLE SODIUM [Concomitant]
     Active Substance: PANTOPRAZOLE SODIUM
     Route: 048
     Dates: start: 20210608, end: 20210610
  159. PANTOPRAZOLE SODIUM [Concomitant]
     Active Substance: PANTOPRAZOLE SODIUM
     Route: 048
     Dates: start: 20210618, end: 20210623
  160. PANTOPRAZOLE SODIUM [Concomitant]
     Active Substance: PANTOPRAZOLE SODIUM
     Dosage: 40 MG, QD
     Route: 048
     Dates: start: 20170721, end: 20180327
  161. LOVENOX [Concomitant]
     Active Substance: ENOXAPARIN SODIUM
     Indication: Product used for unknown indication
     Route: 065
     Dates: start: 20170224, end: 20171130
  162. LOVENOX [Concomitant]
     Active Substance: ENOXAPARIN SODIUM
     Dosage: 40 MG, QD
     Route: 065
     Dates: start: 20170224, end: 20171130
  163. PREGABALIN [Concomitant]
     Active Substance: PREGABALIN
     Indication: Product used for unknown indication
     Dosage: 25 MG, QD
     Route: 048
     Dates: start: 20170428, end: 20180123
  164. PREGABALIN [Concomitant]
     Active Substance: PREGABALIN
     Indication: Product used for unknown indication
     Route: 065
     Dates: start: 20190821, end: 20210616
  165. PREGABALIN [Concomitant]
     Active Substance: PREGABALIN
     Route: 065
     Dates: start: 20190821, end: 20210616
  166. LEVOFLOXACIN [Concomitant]
     Active Substance: LEVOFLOXACIN
     Indication: Product used for unknown indication
     Route: 065
     Dates: start: 20200506, end: 20200512
  167. EUTHYROX [Concomitant]
     Active Substance: LEVOTHYROXINE SODIUM
     Indication: Product used for unknown indication
     Dosage: 75 UG, QD
     Route: 065
     Dates: start: 20170303, end: 20210615
  168. Novalgin [Concomitant]
     Indication: Product used for unknown indication
     Route: 048
     Dates: start: 20170329, end: 20180807
  169. Novalgin [Concomitant]
     Route: 048
     Dates: start: 20210608, end: 20210612
  170. Novalgin [Concomitant]
     Route: 048
     Dates: start: 20210618, end: 20210618
  171. LYRICA [Concomitant]
     Active Substance: PREGABALIN
     Indication: Product used for unknown indication
     Route: 065
     Dates: start: 20190821, end: 20210616
  172. LYRICA [Concomitant]
     Active Substance: PREGABALIN
     Dosage: 25 MG, QD
     Route: 065
     Dates: start: 20170428, end: 20180123
  173. DROPERIDOL [Concomitant]
     Active Substance: DROPERIDOL
     Indication: Gastrointestinal disorder
     Route: 065
     Dates: start: 20210612, end: 20210617
  174. DROPERIDOL [Concomitant]
     Active Substance: DROPERIDOL
     Route: 065
     Dates: start: 20210612, end: 20210617
  175. DRONABINOL [Concomitant]
     Active Substance: DRONABINOL
     Indication: Gastrointestinal disorder
     Route: 065
     Dates: start: 20210608, end: 20210612
  176. DRONABINOL [Concomitant]
     Active Substance: DRONABINOL
     Route: 065
     Dates: start: 20170104, end: 20170106
  177. DRONABINOL [Concomitant]
     Active Substance: DRONABINOL
     Route: 065
     Dates: start: 20170107, end: 20170108
  178. Paspertin [Concomitant]
     Indication: Gastrointestinal disorder
     Route: 065
     Dates: start: 20200506, end: 20201212
  179. Paspertin [Concomitant]
     Route: 065
     Dates: start: 20210608, end: 20210610
  180. Paspertin [Concomitant]
     Route: 065
     Dates: start: 20210611, end: 20210623
  181. Scottopect [Concomitant]
     Indication: Cough
     Route: 065
     Dates: start: 20210611, end: 20210613
  182. VITAMIN C [Concomitant]
     Active Substance: ASCORBIC ACID
     Indication: Gastrointestinal disorder
     Route: 065
     Dates: start: 20210611, end: 20210614
  183. LEVOFLOXACIN [Concomitant]
     Active Substance: LEVOFLOXACIN
     Indication: Product used for unknown indication
     Route: 065
  184. Elomel [Concomitant]
     Indication: Product used for unknown indication
     Route: 065
  185. Elomel [Concomitant]
     Route: 065
  186. Elomel [Concomitant]
     Route: 065
  187. Elomel [Concomitant]
     Route: 065
  188. ONDANSETRON [Concomitant]
     Active Substance: ONDANSETRON
     Indication: Gastrointestinal disorder
     Route: 065
     Dates: start: 20210608, end: 20210610
  189. ONDANSETRON [Concomitant]
     Active Substance: ONDANSETRON
     Route: 065
     Dates: start: 20210608, end: 20210610
  190. Paracodin [Concomitant]
     Indication: Cough
     Route: 065
     Dates: start: 20210428, end: 20210615
  191. Paracodin [Concomitant]
     Route: 048
     Dates: start: 20170708, end: 20170709
  192. Paracodin [Concomitant]
     Route: 065
     Dates: start: 20210608, end: 20210610
  193. Paracodin [Concomitant]
     Route: 065
     Dates: start: 20210428, end: 20210615
  194. BUTYLSCOPOLAMINE BROMIDE [Concomitant]
     Active Substance: BUTYLSCOPOLAMINE BROMIDE
     Indication: Gastrointestinal disorder
     Route: 065
     Dates: start: 20210618, end: 20210618
  195. BUTYLSCOPOLAMINE BROMIDE [Concomitant]
     Active Substance: BUTYLSCOPOLAMINE BROMIDE
     Dosage: UNK, Q24H
     Route: 065
     Dates: start: 20210618, end: 20210618
  196. Halset [Concomitant]
     Indication: Cough
     Route: 065
     Dates: start: 20210611, end: 20210615
  197. Ponveridol [Concomitant]
     Indication: Gastrointestinal disorder
     Route: 065
     Dates: start: 20210618, end: 20210623
  198. Ponveridol [Concomitant]
     Route: 065
     Dates: start: 20210612, end: 20210617
  199. Ponveridol [Concomitant]
     Route: 065
     Dates: start: 20210618, end: 20210623
  200. POLYETHYLENE GLYCOL 3350\POTASSIUM CHLORIDE\SODIUM BICARBONATE\SODIUM [Concomitant]
     Active Substance: POLYETHYLENE GLYCOL 3350\POTASSIUM CHLORIDE\SODIUM BICARBONATE\SODIUM CHLORIDE
     Indication: Product used for unknown indication
     Route: 048
     Dates: start: 20210608, end: 20210616
  201. POLYETHYLENE GLYCOL 3350\POTASSIUM CHLORIDE\SODIUM BICARBONATE\SODIUM [Concomitant]
     Active Substance: POLYETHYLENE GLYCOL 3350\POTASSIUM CHLORIDE\SODIUM BICARBONATE\SODIUM CHLORIDE
     Route: 048
     Dates: start: 20170709, end: 20170709
  202. POLYETHYLENE GLYCOL 3350\POTASSIUM CHLORIDE\SODIUM BICARBONATE\SODIUM [Concomitant]
     Active Substance: POLYETHYLENE GLYCOL 3350\POTASSIUM CHLORIDE\SODIUM BICARBONATE\SODIUM CHLORIDE
     Route: 048
     Dates: start: 20210608, end: 20210616
  203. Temesta [Concomitant]
     Indication: Restlessness
     Route: 065
     Dates: start: 20210611, end: 20210621
  204. Temesta [Concomitant]
     Route: 065
     Dates: start: 20210618, end: 20210623
  205. HYDROMORPHONE HYDROCHLORIDE [Concomitant]
     Active Substance: HYDROMORPHONE HYDROCHLORIDE
     Indication: Product used for unknown indication
     Route: 065
     Dates: start: 20210611, end: 20210615
  206. LACTULOSE [Concomitant]
     Active Substance: LACTULOSE
     Indication: Product used for unknown indication
     Route: 065
  207. PEGFILGRASTIM [Concomitant]
     Active Substance: PEGFILGRASTIM
     Indication: Product used for unknown indication
     Route: 065
     Dates: start: 20210610, end: 20210610
  208. CEFEPIME [Concomitant]
     Active Substance: CEFEPIME HYDROCHLORIDE
     Indication: Product used for unknown indication
     Route: 065
     Dates: start: 20200606, end: 20200615
  209. Xiclav [Concomitant]
     Indication: Product used for unknown indication
     Route: 065
     Dates: start: 20181218, end: 20181222
  210. AMOXICILLIN\CLAVULANATE POTASSIUM [Concomitant]
     Active Substance: AMOXICILLIN\CLAVULANATE POTASSIUM
     Indication: Product used for unknown indication
     Dosage: 1 G
     Route: 048
     Dates: start: 20170711, end: 20170713
  211. AMOXICILLIN\CLAVULANATE POTASSIUM [Concomitant]
     Active Substance: AMOXICILLIN\CLAVULANATE POTASSIUM
     Indication: Product used for unknown indication
     Route: 065
     Dates: start: 20200604, end: 20200605
  212. TRAZODONE HYDROCHLORIDE [Concomitant]
     Active Substance: TRAZODONE HYDROCHLORIDE
     Indication: Product used for unknown indication
     Route: 048
     Dates: start: 20190731, end: 20190910
  213. LIDOCAINE [Concomitant]
     Active Substance: LIDOCAINE
     Indication: Product used for unknown indication
     Route: 065
     Dates: start: 20200610, end: 20200610
  214. HYALURONATE SODIUM [Concomitant]
     Active Substance: HYALURONATE SODIUM
     Indication: Product used for unknown indication
     Route: 065
  215. FILGRASTIM [Concomitant]
     Active Substance: FILGRASTIM
     Indication: Product used for unknown indication
     Route: 058
     Dates: start: 20170704, end: 20170708
  216. FILGRASTIM [Concomitant]
     Active Substance: FILGRASTIM
     Indication: Product used for unknown indication
     Route: 065
     Dates: start: 20200701
  217. ZIEXTENZO [Concomitant]
     Active Substance: PEGFILGRASTIM-BMEZ
     Indication: Product used for unknown indication
     Route: 065
     Dates: start: 20210610, end: 20210610
  218. ZIEXTENZO [Concomitant]
     Active Substance: PEGFILGRASTIM-BMEZ
     Route: 065
  219. AMPHOTERICIN B [Concomitant]
     Active Substance: AMPHOTERICIN B
     Indication: Product used for unknown indication
     Route: 065
  220. AMPHOTERICIN B [Concomitant]
     Active Substance: AMPHOTERICIN B
     Route: 065
  221. Diflucortolone;Lidocaine [Concomitant]
     Indication: Skin fissures
     Route: 065
     Dates: start: 20200430, end: 20200515
  222. SALINE [Concomitant]
     Active Substance: SODIUM CHLORIDE
     Indication: Product used for unknown indication
     Route: 065
  223. SALINE [Concomitant]
     Active Substance: SODIUM CHLORIDE
     Route: 065
  224. SALINE [Concomitant]
     Active Substance: SODIUM CHLORIDE
     Route: 065
  225. SALINE [Concomitant]
     Active Substance: SODIUM CHLORIDE
     Route: 065
  226. SALINE [Concomitant]
     Active Substance: SODIUM CHLORIDE
     Route: 065
  227. TRIMETHOPRIM [Concomitant]
     Active Substance: TRIMETHOPRIM
     Indication: Product used for unknown indication
     Route: 048
     Dates: start: 20190619, end: 20190623
  228. FILGRASTIM [Concomitant]
     Active Substance: FILGRASTIM
     Indication: Product used for unknown indication
     Route: 058
     Dates: start: 20170704, end: 20170708
  229. ALPRAZOLAM [Concomitant]
     Active Substance: ALPRAZOLAM
     Indication: Restlessness
     Route: 065
     Dates: start: 20210613, end: 20210615
  230. ALPRAZOLAM [Concomitant]
     Active Substance: ALPRAZOLAM
     Route: 065
     Dates: start: 20210613, end: 20210615
  231. ALPRAZOLAM [Concomitant]
     Active Substance: ALPRAZOLAM
     Route: 065
  232. ALPRAZOLAM [Concomitant]
     Active Substance: ALPRAZOLAM
     Route: 065
  233. ALPRAZOLAM [Concomitant]
     Active Substance: ALPRAZOLAM
     Route: 065
  234. ALPRAZOLAM [Concomitant]
     Active Substance: ALPRAZOLAM
     Route: 065
  235. ALPRAZOLAM [Concomitant]
     Active Substance: ALPRAZOLAM
     Route: 065
  236. ALPRAZOLAM [Concomitant]
     Active Substance: ALPRAZOLAM
     Route: 065
  237. ALPRAZOLAM [Concomitant]
     Active Substance: ALPRAZOLAM
     Route: 065
  238. ALPRAZOLAM [Concomitant]
     Active Substance: ALPRAZOLAM
     Route: 065
  239. NOVALGINA [Concomitant]
     Active Substance: ACETAMINOPHEN\CAFFEINE
     Indication: Product used for unknown indication
     Route: 065
     Dates: start: 20170329, end: 20180807
  240. NOVALGINA [Concomitant]
     Active Substance: ACETAMINOPHEN\CAFFEINE
     Route: 065
     Dates: start: 20210608, end: 20210612
  241. NOVALGINA [Concomitant]
     Active Substance: ACETAMINOPHEN\CAFFEINE
     Route: 065
     Dates: start: 20210618, end: 20210618
  242. Calcium genericon [Concomitant]
     Indication: Product used for unknown indication
     Route: 065
     Dates: start: 20170203
  243. PANTOPRAZOLE [Concomitant]
     Active Substance: PANTOPRAZOLE
     Indication: Gastrointestinal disorder
     Route: 065
     Dates: start: 20170722, end: 20180327
  244. PANTOPRAZOLE [Concomitant]
     Active Substance: PANTOPRAZOLE
     Route: 065
     Dates: start: 20200506, end: 20200519
  245. PANTOPRAZOLE [Concomitant]
     Active Substance: PANTOPRAZOLE
     Route: 065
     Dates: start: 20210317, end: 20210607
  246. PANTOPRAZOLE [Concomitant]
     Active Substance: PANTOPRAZOLE
     Route: 065
     Dates: start: 20210608, end: 20210610
  247. PANTOPRAZOLE [Concomitant]
     Active Substance: PANTOPRAZOLE
     Route: 065
     Dates: start: 20210618, end: 20210623
  248. HYALURONATE SODIUM [Concomitant]
     Active Substance: HYALURONATE SODIUM
     Indication: Product used for unknown indication
     Route: 065
  249. HYALURONATE SODIUM [Concomitant]
     Active Substance: HYALURONATE SODIUM
     Route: 065
  250. HYALURONATE SODIUM [Concomitant]
     Active Substance: HYALURONATE SODIUM
     Route: 065
  251. HYALURONATE SODIUM [Concomitant]
     Active Substance: HYALURONATE SODIUM
     Route: 065
  252. HYALURONATE SODIUM [Concomitant]
     Active Substance: HYALURONATE SODIUM
     Route: 065
  253. Cetylpyridinium chloride anhydrous [Concomitant]
     Indication: Cough
     Route: 065
     Dates: start: 20210611, end: 20210615
  254. AMOXICILLIN\CLAVULANIC ACID [Concomitant]
     Active Substance: AMOXICILLIN\CLAVULANIC ACID
     Indication: Product used for unknown indication
     Route: 065
     Dates: start: 20170710, end: 20170710
  255. AMOXICILLIN\CLAVULANIC ACID [Concomitant]
     Active Substance: AMOXICILLIN\CLAVULANIC ACID
     Route: 065
     Dates: start: 20200604, end: 20200605
  256. AMOXICILLIN\CLAVULANIC ACID [Concomitant]
     Active Substance: AMOXICILLIN\CLAVULANIC ACID
     Route: 048
     Dates: start: 20170711, end: 20170713
  257. AMOXICILLIN\CLAVULANATE POTASSIUM [Concomitant]
     Active Substance: AMOXICILLIN\CLAVULANATE POTASSIUM
     Indication: Product used for unknown indication
     Route: 048
     Dates: start: 20181218, end: 20181222
  258. MORPHINE [Concomitant]
     Active Substance: MORPHINE
     Indication: Dyspnoea
     Route: 065
     Dates: start: 20210616, end: 20210623
  259. MORPHINE [Concomitant]
     Active Substance: MORPHINE
     Indication: Dyspnoea
     Route: 065
     Dates: start: 20210521, end: 20210623
  260. MORPHINE [Concomitant]
     Active Substance: MORPHINE
     Route: 065
     Dates: start: 20210521, end: 20210616
  261. MORPHINE [Concomitant]
     Active Substance: MORPHINE
     Route: 065
     Dates: start: 20210616, end: 20210623
  262. MORPHINE [Concomitant]
     Active Substance: MORPHINE
     Route: 065
     Dates: start: 20210521, end: 20210616
  263. HYDROMORPHONE HYDROCHLORIDE [Concomitant]
     Active Substance: HYDROMORPHONE HYDROCHLORIDE
     Indication: Product used for unknown indication
     Route: 065
     Dates: start: 20210611, end: 20210615
  264. LIDOCAINE [Concomitant]
     Active Substance: LIDOCAINE
     Indication: Product used for unknown indication
     Route: 065
  265. LIDOCAINE [Concomitant]
     Active Substance: LIDOCAINE
     Route: 065
  266. LIDOCAINE [Concomitant]
     Active Substance: LIDOCAINE
     Route: 065
     Dates: start: 20200610, end: 20200610
  267. Dronabinolum [Concomitant]
     Indication: Gastrointestinal disorder
     Route: 065
     Dates: start: 20210608, end: 20210612
  268. BUTYLSCOPOLAMINE BROMIDE [Concomitant]
     Active Substance: BUTYLSCOPOLAMINE BROMIDE
     Indication: Gastrointestinal disorder
     Route: 065
     Dates: start: 20210618, end: 20210618
  269. Diproderma [Concomitant]
     Indication: Eczema
     Route: 065
     Dates: start: 20191122, end: 20191215
  270. CALCIUM CARBONATE\VITAMIN D [Concomitant]
     Active Substance: CALCIUM CARBONATE\VITAMIN D
     Indication: Product used for unknown indication
     Route: 065
     Dates: start: 20170203, end: 20210612
  271. CALCIUM CARBONATE\VITAMIN D [Concomitant]
     Active Substance: CALCIUM CARBONATE\VITAMIN D
     Route: 065
     Dates: start: 20170203, end: 20210612
  272. ONDANSETRON HYDROCHLORIDE [Concomitant]
     Active Substance: ONDANSETRON HYDROCHLORIDE
     Indication: Gastrointestinal disorder
     Route: 048
     Dates: start: 20200506
  273. ONDANSETRON HYDROCHLORIDE [Concomitant]
     Active Substance: ONDANSETRON HYDROCHLORIDE
     Route: 048
     Dates: start: 20210611, end: 20210616
  274. ONDANSETRON HYDROCHLORIDE [Concomitant]
     Active Substance: ONDANSETRON HYDROCHLORIDE
     Route: 048
     Dates: start: 20170329, end: 20170809
  275. ONDANSETRON HYDROCHLORIDE [Concomitant]
     Active Substance: ONDANSETRON HYDROCHLORIDE
     Route: 065
     Dates: start: 20170329, end: 20170809
  276. ONDANSETRON HYDROCHLORIDE [Concomitant]
     Active Substance: ONDANSETRON HYDROCHLORIDE
     Route: 065
     Dates: start: 20200506
  277. ONDANSETRON HYDROCHLORIDE [Concomitant]
     Active Substance: ONDANSETRON HYDROCHLORIDE
     Route: 065
     Dates: start: 20200506
  278. ONDANSETRON HYDROCHLORIDE [Concomitant]
     Active Substance: ONDANSETRON HYDROCHLORIDE
     Route: 065
     Dates: start: 20210611, end: 20210616
  279. ONDANSETRON HYDROCHLORIDE [Concomitant]
     Active Substance: ONDANSETRON HYDROCHLORIDE
     Route: 048
     Dates: start: 20170329, end: 20170809
  280. LASIX [Concomitant]
     Active Substance: FUROSEMIDE
     Indication: Product used for unknown indication
     Route: 065
     Dates: start: 20240810, end: 20240810
  281. LASIX [Concomitant]
     Active Substance: FUROSEMIDE
     Route: 065
     Dates: start: 20170611, end: 20170809
  282. LASIX [Concomitant]
     Active Substance: FUROSEMIDE
     Route: 065
     Dates: start: 20170713, end: 20170809
  283. LASIX [Concomitant]
     Active Substance: FUROSEMIDE
     Route: 065
     Dates: start: 20170810, end: 20190212
  284. LASIX [Concomitant]
     Active Substance: FUROSEMIDE
     Route: 065
     Dates: start: 20170810, end: 20171213
  285. AUGMENTIN [Concomitant]
     Active Substance: AMOXICILLIN\CLAVULANATE POTASSIUM
     Indication: Product used for unknown indication
     Route: 065
  286. AUGMENTIN [Concomitant]
     Active Substance: AMOXICILLIN\CLAVULANATE POTASSIUM
     Route: 065
     Dates: start: 20170710, end: 20170710
  287. FUROSEMIDE [Concomitant]
     Active Substance: FUROSEMIDE
     Indication: Product used for unknown indication
     Route: 065
     Dates: start: 20170611, end: 20170809
  288. FUROSEMIDE [Concomitant]
     Active Substance: FUROSEMIDE
     Route: 065
     Dates: start: 20170810, end: 20171213
  289. FUROSEMIDE [Concomitant]
     Active Substance: FUROSEMIDE
     Route: 065
     Dates: end: 20190212
  290. FUROSEMIDE [Concomitant]
     Active Substance: FUROSEMIDE
     Route: 065
     Dates: start: 20170713, end: 20170809
  291. FUROSEMIDE [Concomitant]
     Active Substance: FUROSEMIDE
     Route: 065
     Dates: start: 20170810, end: 20171213
  292. FUROSEMIDE [Concomitant]
     Active Substance: FUROSEMIDE
     Route: 065
     Dates: start: 20170810, end: 20190212
  293. Vitamax Vitamin C [Concomitant]
     Indication: Gastrointestinal disorder
     Route: 065
     Dates: start: 20210611, end: 20210614
  294. BETAISODONA [Concomitant]
     Active Substance: POVIDONE-IODINE
     Indication: Skin fissures
     Route: 065
     Dates: start: 20200430, end: 20200515
  295. BETAISODONA [Concomitant]
     Active Substance: POVIDONE-IODINE
     Route: 065
     Dates: start: 20200430, end: 20200515
  296. LORAZEPAM [Concomitant]
     Active Substance: LORAZEPAM
     Indication: Restlessness
     Route: 065
     Dates: start: 20210618, end: 20210623
  297. LORAZEPAM [Concomitant]
     Active Substance: LORAZEPAM
     Route: 065
     Dates: start: 20210618, end: 20210623
  298. LORAZEPAM [Concomitant]
     Active Substance: LORAZEPAM
     Route: 065
  299. BETAMETHASONE DIPROPIONATE [Concomitant]
     Active Substance: BETAMETHASONE DIPROPIONATE
     Indication: Eczema
     Route: 001
     Dates: start: 20191122, end: 20191215
  300. BETAMETHASONE DIPROPIONATE [Concomitant]
     Active Substance: BETAMETHASONE DIPROPIONATE
     Indication: Eczema
     Route: 065
  301. MORPHINE SULFATE [Concomitant]
     Active Substance: MORPHINE SULFATE
     Indication: Product used for unknown indication
     Route: 065
  302. MORPHINE SULFATE [Concomitant]
     Active Substance: MORPHINE SULFATE
     Indication: Dyspnoea
     Route: 065
     Dates: start: 20210521, end: 20210616
  303. MORPHINE SULFATE [Concomitant]
     Active Substance: MORPHINE SULFATE
     Route: 065
     Dates: start: 20210616, end: 20210623
  304. Aceclofenac and paracetamol [Concomitant]
     Indication: Product used for unknown indication
     Route: 065
     Dates: start: 20210622, end: 20210622
  305. Metogastron [Concomitant]
     Indication: Product used for unknown indication
     Route: 065
     Dates: start: 20200506
  306. MARINOL [Concomitant]
     Active Substance: DRONABINOL
     Indication: Gastrointestinal disorder
     Route: 065
     Dates: start: 20210608, end: 20210612
  307. Dexagenta [Concomitant]
     Indication: Brain oedema
     Route: 065
     Dates: start: 20171004, end: 20171006
  308. Dexagenta [Concomitant]
     Route: 065
     Dates: start: 20171007, end: 20171008
  309. Morapid [Concomitant]
     Indication: Dyspnoea
     Route: 065
     Dates: start: 20210616, end: 20210623
  310. Morapid [Concomitant]
     Route: 065
     Dates: start: 20210521, end: 20210616
  311. AMPHO-MORONAL [Concomitant]
     Active Substance: AMPHOTERICIN B
     Indication: Product used for unknown indication
     Route: 065
  312. AMPHO-MORONAL [Concomitant]
     Active Substance: AMPHOTERICIN B
     Indication: Product used for unknown indication
     Route: 065
  313. Healonid [Concomitant]
     Indication: Product used for unknown indication
     Route: 065
  314. Cal c vita [Concomitant]
     Indication: Product used for unknown indication
     Route: 065
     Dates: start: 20170203, end: 20210612
  315. POTASSIUM CHLORIDE [Concomitant]
     Active Substance: POTASSIUM CHLORIDE
     Indication: Product used for unknown indication
     Route: 065
  316. SODIUM CACODYLATE [Concomitant]
     Active Substance: SODIUM CACODYLATE
     Indication: Dyspnoea
     Route: 065
     Dates: start: 20210616, end: 20210623
  317. SODIUM CACODYLATE [Concomitant]
     Active Substance: SODIUM CACODYLATE
     Route: 065
     Dates: start: 20210521, end: 20210616
  318. Actimaris [Concomitant]
     Indication: Product used for unknown indication
     Route: 065
     Dates: start: 20200108, end: 20200128
  319. LEVOTHYROXINE SODIUM [Concomitant]
     Active Substance: LEVOTHYROXINE SODIUM
     Indication: Product used for unknown indication
     Route: 065
     Dates: start: 20170303, end: 20210615
  320. AMOXICILLIN\CLAVULANIC ACID [Concomitant]
     Active Substance: AMOXICILLIN\CLAVULANIC ACID
     Indication: Product used for unknown indication
     Route: 048
     Dates: start: 20170711, end: 20170713
  321. AMOXICILLIN\CLAVULANIC ACID [Concomitant]
     Active Substance: AMOXICILLIN\CLAVULANIC ACID
     Route: 065
     Dates: start: 20170710, end: 20170710
  322. AMOXICILLIN\CLAVULANIC ACID [Concomitant]
     Active Substance: AMOXICILLIN\CLAVULANIC ACID
     Route: 065
     Dates: start: 20200604, end: 20200605
  323. AMOXICILLIN\CLAVULANATE POTASSIUM [Concomitant]
     Active Substance: AMOXICILLIN\CLAVULANATE POTASSIUM
     Indication: Product used for unknown indication
     Route: 048
     Dates: start: 20181218, end: 20181222
  324. DEXAMETHASONE [Concomitant]
     Active Substance: DEXAMETHASONE
     Indication: Brain oedema
     Route: 065
     Dates: start: 20171007, end: 20171008
  325. DEXAMETHASONE [Concomitant]
     Active Substance: DEXAMETHASONE
     Route: 065
     Dates: start: 20171004, end: 20171006
  326. DEXAMETHASONE [Concomitant]
     Active Substance: DEXAMETHASONE
     Route: 065
     Dates: start: 20200422, end: 20200505

REACTIONS (22)
  - Metastases to central nervous system [Not Recovered/Not Resolved]
  - Breast cancer metastatic [Unknown]
  - Metastases to lymph nodes [Not Recovered/Not Resolved]
  - Vascular device infection [Recovered/Resolved]
  - Streptococcal sepsis [Recovered/Resolved]
  - Brain oedema [Not Recovered/Not Resolved]
  - Pseudomonal sepsis [Recovered/Resolved]
  - Restlessness [Unknown]
  - Fatigue [Recovered/Resolved]
  - Back pain [Recovered/Resolved]
  - Candida infection [Recovered/Resolved]
  - C-reactive protein increased [Not Recovered/Not Resolved]
  - Paronychia [Recovered/Resolved]
  - Restlessness [Not Recovered/Not Resolved]
  - Nasal mucosal disorder [Recovered/Resolved]
  - Skin fissures [Recovered/Resolved]
  - Pleural effusion [Recovered/Resolved]
  - Eczema [Not Recovered/Not Resolved]
  - Nail bed inflammation [Not Recovered/Not Resolved]
  - Varicose vein [Not Recovered/Not Resolved]
  - Vomiting [Recovered/Resolved]
  - Off label use [Unknown]

NARRATIVE: CASE EVENT DATE: 20170921
